FAERS Safety Report 9847535 (Version 1)
Quarter: 2014Q1

REPORT INFORMATION
  Report Type: Spontaneous
  Country: US (occurrence: US)
  Receive Date: 20140128
  Receipt Date: 20140128
  Transmission Date: 20141002
  Serious: Yes (Hospitalization, Other)
  Sender: FDA-Public Use
  Company Number: US-AMGEN-USASP2014004490

PATIENT
  Age: 66 Year
  Sex: Female

DRUGS (1)
  1. PROLIA [Suspect]
     Indication: OSTEOPOROSIS POSTMENOPAUSAL
     Dosage: UNK
     Route: 065
     Dates: start: 2013

REACTIONS (11)
  - Crohn^s disease [Unknown]
  - Abdominal infection [Unknown]
  - Colitis ulcerative [Unknown]
  - Delirium [Unknown]
  - Pyrexia [Not Recovered/Not Resolved]
  - Nausea [Unknown]
  - Vomiting [Unknown]
  - Diarrhoea [Not Recovered/Not Resolved]
  - Dehydration [Unknown]
  - Gastrointestinal haemorrhage [Unknown]
  - Fatigue [Unknown]
